FAERS Safety Report 4506183-7 (Version None)
Quarter: 2004Q4

REPORT INFORMATION
  Report Type: 
  Country: None (occurrence: None)
  Receive Date: 20041119
  Receipt Date: 20040831
  Transmission Date: 20050328
  Serious: Yes (Other)
  Sender: FDA-Public Use
  Company Number: US-MERCK-0409USA00099

PATIENT
  Age: 51 Year
  Sex: Male
  Weight: 81 kg

DRUGS (5)
  1. ZETIA [Suspect]
     Indication: HYPERLIPIDAEMIA
     Route: 048
     Dates: start: 20040713, end: 20040825
  2. ZETIA [Suspect]
     Indication: BLOOD CHOLESTEROL INCREASED
     Route: 048
     Dates: start: 20040713, end: 20040825
  3. LIPITOR [Concomitant]
     Route: 048
     Dates: end: 20040825
  4. CIALIS [Concomitant]
     Route: 048
     Dates: start: 20040713
  5. DIOVAN [Concomitant]
     Route: 048
     Dates: start: 20040817

REACTIONS (8)
  - ALANINE AMINOTRANSFERASE INCREASED [None]
  - ASPARTATE AMINOTRANSFERASE INCREASED [None]
  - CHILLS [None]
  - FATIGUE [None]
  - HEADACHE [None]
  - MALAISE [None]
  - MYALGIA [None]
  - PYREXIA [None]
